APPROVED DRUG PRODUCT: FAMOTIDINE
Active Ingredient: FAMOTIDINE
Strength: 40MG/5ML
Dosage Form/Route: FOR SUSPENSION;ORAL
Application: A201695 | Product #001 | TE Code: AB
Applicant: NOVEL LABORATORIES INC
Approved: Dec 17, 2012 | RLD: No | RS: No | Type: RX